FAERS Safety Report 12505846 (Version 1)
Quarter: 2016Q2

REPORT INFORMATION
  Report Type: Spontaneous
  Country: US (occurrence: US)
  Receive Date: 20160628
  Receipt Date: 20160628
  Transmission Date: 20160815
  Serious: Yes (Other)
  Sender: FDA-Public Use
  Company Number: US-SUNOVION-2016SUN001593

PATIENT
  Age: 59 Year
  Sex: Female

DRUGS (7)
  1. LAMOTRIGINE. [Concomitant]
     Active Substance: LAMOTRIGINE
     Dosage: 200 MG, QD
     Route: 048
  2. CLONAZEPAM. [Concomitant]
     Active Substance: CLONAZEPAM
     Dosage: 0.5 MG, AS NECESSARY
     Route: 048
  3. AMBIEN [Concomitant]
     Active Substance: ZOLPIDEM TARTRATE
     Dosage: 5 MG, QD
     Route: 048
  4. TOPAMAX [Concomitant]
     Active Substance: TOPIRAMATE
     Dosage: 50 MG, QD
     Route: 048
  5. LATUDA [Suspect]
     Active Substance: LURASIDONE HYDROCHLORIDE
     Dosage: UNK
     Route: 048
     Dates: start: 201606
  6. BUPROPION. [Concomitant]
     Active Substance: BUPROPION
     Dosage: 300 MG, QD
     Route: 048
  7. LATUDA [Suspect]
     Active Substance: LURASIDONE HYDROCHLORIDE
     Indication: BIPOLAR DISORDER
     Dosage: 60 MG, UNK
     Route: 048
     Dates: start: 2015

REACTIONS (1)
  - Colitis ischaemic [Unknown]
